FAERS Safety Report 9098020 (Version 1)
Quarter: 2013Q1

REPORT INFORMATION
  Report Type: Spontaneous
  Country: US (occurrence: US)
  Receive Date: 20130212
  Receipt Date: 20130212
  Transmission Date: 20140127
  Serious: No
  Sender: FDA-Public Use
  Company Number: US-PFIZER INC-2013052164

PATIENT
  Sex: 0

DRUGS (1)
  1. VORICONAZOLE [Suspect]
     Indication: ASPERGILLUS INFECTION
     Dosage: UNK

REACTIONS (2)
  - Hepatotoxicity [Unknown]
  - Incorrect route of drug administration [Unknown]
